FAERS Safety Report 6668085-X (Version None)
Quarter: 2010Q2

REPORT INFORMATION
  Report Type: 
  Country: None (occurrence: None)
  Receive Date: 20100405
  Receipt Date: 20100325
  Transmission Date: 20101027
  Serious: Yes (Other)
  Sender: FDA-Public Use
  Company Number: DE-BRISTOL-MYERS SQUIBB COMPANY-15043953

PATIENT
  Age: 61 Year
  Sex: Female

DRUGS (2)
  1. TAXOL [Suspect]
     Indication: OVARIAN CANCER
     Dosage: 6 CYCLES
  2. CARBOPLATIN [Suspect]
     Indication: OVARIAN CANCER
     Dosage: 6 CYCLES

REACTIONS (4)
  - MALAISE [None]
  - OEDEMA [None]
  - SCLERODERMA [None]
  - WEIGHT INCREASED [None]
